FAERS Safety Report 6962978-1 (Version None)
Quarter: 2010Q3

REPORT INFORMATION
  Report Type: 
  Country: None (occurrence: None)
  Receive Date: 20100831
  Receipt Date: 20100819
  Transmission Date: 20110219
  Serious: Yes (Hospitalization, Other)
  Sender: FDA-Public Use
  Company Number: DSU-2010-04266

PATIENT
  Age: 49 Year
  Sex: Male

DRUGS (3)
  1. BENICAR [Suspect]
     Indication: LYME DISEASE
     Dosage: 20 MG (10 MG,1/2 TABLET BID), PER ORAL
     Route: 048
     Dates: start: 20091216
  2. LITHIUM CARBONATE [Suspect]
     Indication: PRODUCT USED FOR UNKNOWN INDICATION
     Dosage: 20 MG (10 MG,1/2 TABLET BID), PER ORAL
     Route: 048
  3. ALL OTHER THERAPEUTIC PRODUCTS (ALL OTHER THERAPEUTIC PRODUCTS) [Concomitant]

REACTIONS (3)
  - DRUG INTERACTION [None]
  - OFF LABEL USE [None]
  - RENAL FAILURE [None]
